FAERS Safety Report 5652931-2 (Version None)
Quarter: 2008Q1

REPORT INFORMATION
  Report Type: 
  Country: None (occurrence: None)
  Receive Date: 20080306
  Receipt Date: 20080226
  Transmission Date: 20080703
  Serious: Yes (Other)
  Sender: FDA-Public Use
  Company Number: US-ROCHE-549806

PATIENT
  Age: 44 Year
  Sex: Male

DRUGS (2)
  1. PEG-INTERFERON A-2A (RO 25-8310) [Suspect]
     Route: 065
     Dates: start: 20071116
  2. RIBAVIRIN [Suspect]
     Route: 065

REACTIONS (2)
  - DIVERTICULUM [None]
  - RASH [None]
